FAERS Safety Report 5196348-6 (Version None)
Quarter: 2007Q1

REPORT INFORMATION
  Report Type: 
  Country: None (occurrence: None)
  Receive Date: 20070102
  Receipt Date: 20061221
  Transmission Date: 20070707
  Serious: Yes (Death, Other)
  Sender: FDA-Public Use
  Company Number: CH-PFIZER INC-2006156132

PATIENT
  Sex: Female

DRUGS (3)
  1. ZYRTEC [Suspect]
     Indication: URTICARIA
     Dates: start: 20050101, end: 20050101
  2. LORAZEPAM [Suspect]
     Indication: DEPRESSION
     Dates: start: 20050101, end: 20050101
  3. FLUCTINE [Suspect]
     Indication: DEPRESSION
     Dates: start: 20050101, end: 20050101

REACTIONS (5)
  - DRUG EXPOSURE DURING PREGNANCY [None]
  - FOETAL GROWTH RETARDATION [None]
  - INTRA-UTERINE DEATH [None]
  - OLIGOHYDRAMNIOS [None]
  - STILLBIRTH [None]
